FAERS Safety Report 4522384-6 (Version None)
Quarter: 2004Q4

REPORT INFORMATION
  Report Type: 
  Country: None (occurrence: None)
  Receive Date: 20041209
  Receipt Date: 20041125
  Transmission Date: 20050328
  Serious: Yes (Other)
  Sender: FDA-Public Use
  Company Number: 2004/LAMICTALWWW

PATIENT

DRUGS (2)
  1. LAMICTAL [Suspect]
     Indication: EPILEPSY
     Dosage: 100U UNKNOWN
  2. UNSPECIFIED MEDICATIONS [Concomitant]
     Indication: EPILEPSY

REACTIONS (6)
  - DIZZINESS [None]
  - EPILEPSY [None]
  - FATIGUE [None]
  - MUSCLE SPASMS [None]
  - PARAESTHESIA [None]
  - RASH [None]
